FAERS Safety Report 25522495 (Version 1)
Quarter: 2025Q3

REPORT INFORMATION
  Report Type: Spontaneous
  Country: GB (occurrence: GB)
  Receive Date: 20250707
  Receipt Date: 20250707
  Transmission Date: 20251021
  Serious: Yes (Other)
  Sender: NOVO NORDISK
  Company Number: None

PATIENT

DRUGS (3)
  1. SEMAGLUTIDE [Suspect]
     Active Substance: SEMAGLUTIDE
     Indication: Product used for unknown indication
  2. CANDESARTAN [Concomitant]
     Active Substance: CANDESARTAN
  3. CODEINE [Concomitant]
     Active Substance: CODEINE

REACTIONS (1)
  - Deep vein thrombosis [Recovering/Resolving]
